FAERS Safety Report 21390738 (Version 6)
Quarter: 2024Q4

REPORT INFORMATION
  Report Type: Spontaneous
  Country: US (occurrence: US)
  Receive Date: 20220929
  Receipt Date: 20241223
  Transmission Date: 20250114
  Serious: No
  Sender: PFIZER
  Company Number: US-PFIZER INC-PV202200072550

PATIENT
  Age: 84 Year
  Sex: Female

DRUGS (2)
  1. IBRANCE [Suspect]
     Active Substance: PALBOCICLIB
     Dosage: 125 MG, CYCLIC, (1 TAB QD X 21 DAYS, OFF 7 DAYS)
     Route: 048
     Dates: start: 20220919
  2. IBRANCE [Suspect]
     Active Substance: PALBOCICLIB
     Dosage: 1 TAB PO QD X 21 DAYS, OFF 7 DAYS
     Route: 048

REACTIONS (5)
  - Illness [Unknown]
  - Abdominal discomfort [Unknown]
  - Vomiting [Unknown]
  - Fatigue [Unknown]
  - Nausea [Unknown]

NARRATIVE: CASE EVENT DATE: 20220101
